FAERS Safety Report 15355795 (Version 2)
Quarter: 2018Q3

REPORT INFORMATION
  Report Type: Report from Study
  Country: None (occurrence: GB)
  Receive Date: 20180906
  Receipt Date: 20180918
  Transmission Date: 20181010
  Serious: Yes (Life-Threatening, Hospitalization)
  Sender: FDA-Public Use
  Company Number: GB-ABBVIE-18K-167-2475980-00

PATIENT
  Age: 37 Year
  Sex: Female

DRUGS (1)
  1. HUMIRA [Suspect]
     Active Substance: ADALIMUMAB
     Indication: CROHN^S DISEASE
     Route: 058
     Dates: start: 20170131

REACTIONS (3)
  - Exposure during pregnancy [Unknown]
  - Ectopic pregnancy [Recovered/Resolved]
  - Postoperative adhesion [Unknown]

NARRATIVE: CASE EVENT DATE: 20180904
